FAERS Safety Report 19196279 (Version 1)
Quarter: 2021Q2

REPORT INFORMATION
  Report Type: Spontaneous
  Country: CA (occurrence: CA)
  Receive Date: 20210429
  Receipt Date: 20210429
  Transmission Date: 20210717
  Serious: Yes (Life-Threatening, Hospitalization)
  Sender: FDA-Public Use
  Company Number: CA-JNJFOC-20210444818

PATIENT
  Age: 68 Year
  Sex: Female
  Weight: 88.44 kg

DRUGS (9)
  1. DIGOXIN. [Concomitant]
     Active Substance: DIGOXIN
  2. NOVOMIX [Concomitant]
     Active Substance: INSULIN ASPART
  3. KEPPRA [Concomitant]
     Active Substance: LEVETIRACETAM
  4. METOCLOPRAMIDE. [Concomitant]
     Active Substance: METOCLOPRAMIDE
  5. SALBUTAMOL [Concomitant]
     Active Substance: ALBUTEROL
     Route: 055
  6. XARELTO [Suspect]
     Active Substance: RIVAROXABAN
     Indication: ATRIAL FIBRILLATION
     Dosage: 20 MG, QD
     Route: 048
  7. ADVAIR HFA [Concomitant]
     Active Substance: FLUTICASONE PROPIONATE\SALMETEROL XINAFOATE
  8. NADOLOL. [Concomitant]
     Active Substance: NADOLOL
  9. VITAMIN D [VITAMIN D NOS] [Concomitant]
     Active Substance: VITAMIN D NOS

REACTIONS (3)
  - Gastric ulcer [Unknown]
  - Haematemesis [Unknown]
  - Rectal haemorrhage [Unknown]
